FAERS Safety Report 17333506 (Version 1)
Quarter: 2020Q1

REPORT INFORMATION
  Report Type: Spontaneous
  Country: US (occurrence: US)
  Receive Date: 20200113
  Receipt Date: 20200113
  Transmission Date: 20200409
  Serious: No
  Sender: FDA-Public Use
  Company Number: None

PATIENT
  Age: 4 Year
  Sex: Male

DRUGS (1)
  1. SILDENAFIL 10MG/ML PW SUS (112ML) [Suspect]
     Active Substance: SILDENAFIL
     Route: 048
     Dates: start: 201911

REACTIONS (2)
  - Product reconstitution quality issue [None]
  - Product dispensing error [None]

NARRATIVE: CASE EVENT DATE: 20200112
